FAERS Safety Report 6170091-9 (Version None)
Quarter: 2009Q2

REPORT INFORMATION
  Report Type: 
  Country: None (occurrence: None)
  Receive Date: 20090428
  Receipt Date: 20090424
  Transmission Date: 20091009
  Serious: Yes (Hospitalization)
  Sender: FDA-Public Use
  Company Number: B0550406A

PATIENT
  Sex: Female
  Weight: 72 kg

DRUGS (3)
  1. LAPATINIB [Suspect]
     Indication: BREAST CANCER
     Dosage: 1500MG PER DAY
     Route: 048
     Dates: start: 20081209, end: 20081210
  2. EPIRUBICIN [Suspect]
     Indication: BREAST CANCER
     Dosage: 156MG EVERY 3 WEEKS
     Route: 042
     Dates: start: 20081208, end: 20081208
  3. CYCLOPHOSPHAMIDE [Suspect]
     Indication: BREAST CANCER
     Dosage: 1038MG EVERY 3 WEEKS
     Route: 042
     Dates: start: 20081208, end: 20081208

REACTIONS (3)
  - HYPERTENSION [None]
  - ISCHAEMIC STROKE [None]
  - SENSORY DISTURBANCE [None]
